FAERS Safety Report 13945251 (Version 1)
Quarter: 2017Q3

REPORT INFORMATION
  Report Type: Spontaneous
  Country: US (occurrence: US)
  Receive Date: 20170907
  Receipt Date: 20170907
  Transmission Date: 20171128
  Serious: Yes (Other)
  Sender: FDA-Public Use
  Company Number: US-LUPIN PHARMACEUTICALS INC.-2016-03458

PATIENT
  Age: 57 Year
  Sex: Female

DRUGS (4)
  1. HYDROMORPHONE [Suspect]
     Active Substance: HYDROMORPHONE
     Indication: POST LAMINECTOMY SYNDROME
     Dosage: 72 MCG
     Route: 037
  2. AMLODIPINE [Suspect]
     Active Substance: AMLODIPINE BESYLATE
     Indication: PRODUCT USED FOR UNKNOWN INDICATION
     Dosage: UNK UNK,UNK,UNKNOWN
     Route: 065
  3. BUPIVACAINE. [Concomitant]
     Active Substance: BUPIVACAINE
     Indication: POST LAMINECTOMY SYNDROME
     Dosage: 7.2 MG
     Route: 037
  4. HYDROMORPHONE [Suspect]
     Active Substance: HYDROMORPHONE
     Dosage: 55 MCG
     Route: 037

REACTIONS (1)
  - Oedema peripheral [Recovered/Resolved]
